FAERS Safety Report 8168630 (Version 4)
Quarter: 2013Q3

REPORT INFORMATION
  Report Type: Spontaneous
  Country: US (occurrence: US)
  Receive Date: 20111005
  Receipt Date: 20130731
  Transmission Date: 20140515
  Serious: Yes (Hospitalization)
  Sender: FDA-Public Use
  Company Number: US-BIOGENIDEC-2011BI036792

PATIENT
  Sex: Male

DRUGS (19)
  1. AVONEX [Suspect]
     Indication: MULTIPLE SCLEROSIS
     Route: 030
     Dates: start: 20100927
  2. AMPYRA [Concomitant]
     Indication: GAIT DISTURBANCE
     Route: 048
     Dates: start: 201009, end: 201302
  3. AMPYRA [Concomitant]
     Indication: GAIT DISTURBANCE
     Route: 048
     Dates: start: 201009, end: 201302
  4. AMPYRA [Concomitant]
     Indication: GAIT DISTURBANCE
     Route: 048
     Dates: start: 201009, end: 201302
  5. AMPYRA [Concomitant]
     Indication: GAIT DISTURBANCE
     Route: 048
     Dates: start: 201009, end: 201302
  6. ATENOLOL [Concomitant]
  7. AMIODARONE [Concomitant]
  8. PREVACID [Concomitant]
  9. ASPIRIN [Concomitant]
  10. CYCLOBENZAPRINE [Concomitant]
  11. PLAVIX [Concomitant]
  12. NIASPAN [Concomitant]
  13. LISINOPRIL [Concomitant]
  14. VESICARE [Concomitant]
  15. NITROSTAT [Concomitant]
  16. CRESTOR [Concomitant]
  17. VITAMIN B12 [Concomitant]
  18. FISH OIL [Concomitant]
  19. VITAMIN D [Concomitant]

REACTIONS (12)
  - Hepatic cancer [Recovered/Resolved]
  - Kidney infection [Recovered/Resolved]
  - Cardiac disorder [Recovered/Resolved]
  - Post procedural sepsis [Recovered/Resolved]
  - Cystitis [Recovered/Resolved]
  - Hypotension [Recovered/Resolved]
  - Prostatic disorder [Recovered/Resolved]
  - Arrhythmia [Recovered/Resolved]
  - Fall [Recovered/Resolved]
  - Gait disturbance [Unknown]
  - Balance disorder [Unknown]
  - Hepatic enzyme increased [Recovered/Resolved]
